FAERS Safety Report 26169181 (Version 1)
Quarter: 2025Q4

REPORT INFORMATION
  Report Type: Spontaneous
  Country: US (occurrence: None)
  Receive Date: 20251217
  Receipt Date: 20251217
  Transmission Date: 20260118
  Serious: Yes (Hospitalization)
  Sender: FDA-CTU
  Company Number: None

PATIENT
  Age: 62 Year
  Sex: Male
  Weight: 65.2 kg

DRUGS (5)
  1. FLUOROURACIL [Suspect]
     Active Substance: FLUOROURACIL
     Dates: end: 20251202
  2. CAMPTOSAR [Suspect]
     Active Substance: IRINOTECAN HYDROCHLORIDE
     Dates: end: 20251202
  3. LEUCOVORIN CALCIUM [Suspect]
     Active Substance: LEUCOVORIN CALCIUM
     Dates: end: 20251202
  4. NIVOLUMAB [Suspect]
     Active Substance: NIVOLUMAB
     Dates: end: 20251202
  5. ELOXATIN [Suspect]
     Active Substance: OXALIPLATIN
     Dates: end: 20251202

REACTIONS (8)
  - Dizziness [None]
  - Balance disorder [None]
  - Visual impairment [None]
  - Nausea [None]
  - Vertigo [None]
  - Slow speech [None]
  - Paraesthesia [None]
  - Hypophagia [None]

NARRATIVE: CASE EVENT DATE: 20251208
